FAERS Safety Report 5288118-5 (Version None)
Quarter: 2007Q1

REPORT INFORMATION
  Report Type: 
  Country: None (occurrence: None)
  Receive Date: 20070329
  Receipt Date: 20070315
  Transmission Date: 20070707
  Serious: Yes (Hospitalization)
  Sender: FDA-Public Use
  Company Number: 235209

PATIENT
  Age: 70 Year
  Sex: Male

DRUGS (12)
  1. XOLAIR [Suspect]
     Indication: ASTHMA
     Dosage: 375 MG, Q2W, SUBCUTANEOUS
     Route: 058
     Dates: start: 20060901
  2. OXYGEN (OXYGEN) [Concomitant]
  3. SERETIDE (FLUTICASONE PROPIONATE, SALMETEROL XINAFOATE) [Concomitant]
  4. SALMETEROL XINAFOATE (SALMETEROL XINAFOATE) [Concomitant]
  5. COMBIVENT [Concomitant]
  6. DUOVENT (FENOTEROL, IPRATROPIUM BROMIDE) [Concomitant]
  7. SINGULAIR [Concomitant]
  8. TRIAMCINOLONE [Concomitant]
  9. PROMETHEZINE HCL [Concomitant]
  10. EPHEDRINE SUL CAP [Concomitant]
  11. BELLADONNA (BELLADONNA) [Concomitant]
  12. MEDROL [Concomitant]

REACTIONS (5)
  - ASPERGILLOSIS [None]
  - ASTHMATIC CRISIS [None]
  - BRONCHIECTASIS [None]
  - LUNG INFILTRATION [None]
  - RADIOALLERGOSORBENT TEST POSITIVE [None]
